FAERS Safety Report 5097819-3 (Version None)
Quarter: 2006Q3

REPORT INFORMATION
  Report Type: 
  Country: None (occurrence: None)
  Receive Date: 20060731
  Receipt Date: 20060404
  Transmission Date: 20061208
  Serious: Yes (Other)
  Sender: FDA-Public Use
  Company Number: 223633

PATIENT
  Age: 72 Year
  Sex: Female

DRUGS (1)
  1. HERCEPTIN [Suspect]
     Indication: BREAST CANCER METASTATIC
     Dosage: 560 MG, Q3W, INTRAVENOUS
     Route: 042
     Dates: start: 20051018, end: 20060207

REACTIONS (1)
  - EJECTION FRACTION DECREASED [None]
